FAERS Safety Report 4300063-8 (Version None)
Quarter: 2004Q1

REPORT INFORMATION
  Report Type: 
  Country: None (occurrence: None)
  Receive Date: 20040219
  Receipt Date: 20040219
  Transmission Date: 20041129
  Serious: Yes (Death)
  Sender: FDA-Public Use
  Company Number: None

PATIENT
  Age: 57 Year
  Sex: Male
  Weight: 84 kg

DRUGS (9)
  1. AMOXICILLIN [Suspect]
     Indication: INFECTION PROPHYLAXIS
     Dosage: 1 PO TID
     Route: 048
  2. CIPRO [Suspect]
     Indication: INFECTION PROPHYLAXIS
     Dosage: 1 PO Q WEEK
     Route: 048
  3. FENTANYL [Concomitant]
  4. LASIX [Concomitant]
  5. GABAPENTIN [Concomitant]
  6. LACTULOSE [Concomitant]
  7. LORAZEPAM [Concomitant]
  8. RISPERDAL [Concomitant]
  9. SPIRONOLACTONE [Concomitant]

REACTIONS (4)
  - ABDOMINAL DISTENSION [None]
  - BACTERIA STOOL IDENTIFIED [None]
  - DIARRHOEA [None]
  - HEPATORENAL SYNDROME [None]
